FAERS Safety Report 8910032 (Version 1)
Quarter: 2012Q4

REPORT INFORMATION
  Report Type: Report from Study
  Country: IE (occurrence: IE)
  Receive Date: 20121115
  Receipt Date: 20121115
  Transmission Date: 20130627
  Serious: Yes (Hospitalization)
  Sender: FDA-Public Use
  Company Number: IE-ABBOTT-12P-229-1005062-00

PATIENT
  Sex: Male

DRUGS (4)
  1. HUMIRA [Suspect]
     Indication: COLITIS ULCERATIVE
     Route: 058
     Dates: start: 20121008
  2. SCHERIPROCT [Concomitant]
     Indication: PRODUCT USED FOR UNKNOWN INDICATION
  3. IMURAN [Concomitant]
     Indication: PRODUCT USED FOR UNKNOWN INDICATION
  4. MEZAVANT [Concomitant]
     Indication: PRODUCT USED FOR UNKNOWN INDICATION

REACTIONS (1)
  - Cyst [Recovering/Resolving]
